FAERS Safety Report 16776915 (Version 2)
Quarter: 2019Q4

REPORT INFORMATION
  Report Type: Report from Study
  Country: GB (occurrence: GB)
  Receive Date: 20190905
  Receipt Date: 20191211
  Transmission Date: 20200122
  Serious: Yes (Hospitalization, Other)
  Sender: FDA-Public Use
  Company Number: GB-PFIZER INC-2019376999

PATIENT
  Sex: Female

DRUGS (3)
  1. IXEKIZUMAB [Interacting]
     Active Substance: IXEKIZUMAB
     Dosage: 80 MG, MONTHLY (1/M), FOUR WEEKLY
     Route: 058
  2. METHOTREXATE SODIUM. [Suspect]
     Active Substance: METHOTREXATE SODIUM
     Dosage: UNK
     Route: 065
  3. IXEKIZUMAB [Interacting]
     Active Substance: IXEKIZUMAB
     Indication: PSORIASIS
     Dosage: 80 MG, MONTHLY (1/M), FOUR WEEKLY
     Route: 058

REACTIONS (2)
  - Pneumonia [Unknown]
  - Drug interaction [Unknown]
